FAERS Safety Report 12301728 (Version 1)
Quarter: 2016Q2

REPORT INFORMATION
  Report Type: Spontaneous
  Country: US (occurrence: US)
  Receive Date: 20160425
  Receipt Date: 20160425
  Transmission Date: 20160815
  Serious: No
  Sender: FDA-Public Use
  Company Number: US-ASTELLAS-2015US029159

PATIENT
  Age: 60 Year
  Sex: Female

DRUGS (2)
  1. LEXISCAN [Suspect]
     Active Substance: REGADENOSON
     Dosage: UNK UNK, UNKNOWN FREQ.
     Route: 042
     Dates: start: 20150813, end: 20150813
  2. LEXISCAN [Suspect]
     Active Substance: REGADENOSON
     Indication: CHEST PAIN
     Dosage: UNK, UNKNOWN FREQ.
     Route: 042
     Dates: start: 20150813

REACTIONS (4)
  - Accidental exposure to product [Unknown]
  - Underdose [Unknown]
  - Injection site extravasation [Unknown]
  - Off label use [Unknown]

NARRATIVE: CASE EVENT DATE: 20150813
